FAERS Safety Report 7742979-6 (Version None)
Quarter: 2011Q3

REPORT INFORMATION
  Report Type: 
  Country: None (occurrence: None)
  Receive Date: 20110912
  Receipt Date: 20110901
  Transmission Date: 20111222
  Serious: Yes (Other)
  Sender: FDA-Public Use
  Company Number: US-JNJFOC-20110901912

PATIENT
  Sex: Female

DRUGS (3)
  1. ARAVA [Concomitant]
  2. METHOTREXATE [Concomitant]
  3. REMICADE [Suspect]
     Indication: RHEUMATOID ARTHRITIS
     Dosage: 19 DOSES TOTAL
     Route: 042
     Dates: end: 20090401

REACTIONS (1)
  - METASTATIC NEOPLASM [None]
